FAERS Safety Report 8816655 (Version 1)
Quarter: 2012Q4

REPORT INFORMATION
  Report Type: Spontaneous
  Country: IN (occurrence: None)
  Receive Date: 20120928
  Receipt Date: 20120928
  Transmission Date: 20130627
  Serious: No
  Sender: FDA-Public Use
  Company Number: 2012P1059074

PATIENT
  Age: 14 Year
  Sex: Female

DRUGS (3)
  1. PHENYTOIN [Suspect]
     Indication: EPILEPSY
  2. CARBAMAZEPINE [Concomitant]
  3. VALPROATE [Concomitant]

REACTIONS (2)
  - Tooth disorder [None]
  - Mineral metabolism disorder [None]
